FAERS Safety Report 25188615 (Version 2)
Quarter: 2025Q2

REPORT INFORMATION
  Report Type: Spontaneous
  Country: JP (occurrence: JP)
  Receive Date: 20250411
  Receipt Date: 20250603
  Transmission Date: 20250716
  Serious: Yes (Hospitalization)
  Sender: JOHNSON AND JOHNSON
  Company Number: JP-JNJFOC-20250404431

PATIENT
  Age: 87 Year
  Sex: Male
  Weight: 62.5 kg

DRUGS (7)
  1. OPSUMIT [Suspect]
     Active Substance: MACITENTAN
     Indication: Pulmonary arterial hypertension
     Dosage: DOSE UNKNOWN
     Route: 048
  2. OXYGEN [Concomitant]
     Active Substance: OXYGEN
     Indication: Pulmonary arterial hypertension
     Route: 065
  3. DOBUTAMINE HYDROCHLORIDE [Concomitant]
     Active Substance: DOBUTAMINE HYDROCHLORIDE
     Indication: Pulmonary arterial hypertension
     Route: 065
  4. NITRIC OXIDE [Concomitant]
     Active Substance: NITRIC OXIDE
     Indication: Pulmonary arterial hypertension
     Route: 065
  5. TADALAFIL [Concomitant]
     Active Substance: TADALAFIL
     Indication: Product used for unknown indication
     Dosage: PERORAL MEDICINE, DOSE UNKNOWN
     Route: 048
  6. REMIMAZOLAM BESILATE [Concomitant]
     Indication: General anaesthesia
     Route: 042
  7. OLPRINONE HYDROCHLORIDE HYDRATE [Concomitant]
     Indication: Product used for unknown indication
     Route: 065

REACTIONS (1)
  - Ileus [Recovered/Resolved]
